FAERS Safety Report 5749568-3 (Version None)
Quarter: 2008Q2

REPORT INFORMATION
  Report Type: 
  Country: None (occurrence: None)
  Receive Date: 20080520
  Receipt Date: 20080520
  Transmission Date: 20081010
  Serious: Yes (Hospitalization)
  Sender: FDA-Public Use
  Company Number: None

PATIENT
  Age: 61 Year
  Sex: Male
  Weight: 69 kg

DRUGS (2)
  1. AZATHIOPRINE [Suspect]
     Indication: CROHN'S DISEASE
     Dosage: 150 MG EVERY DAY PO
     Route: 048
     Dates: start: 19990817, end: 20080415
  2. BUDESONIDE [Suspect]
     Indication: CROHN'S DISEASE
     Dosage: 9 MG EVERY DAY PO
     Route: 048
     Dates: start: 20050121, end: 20080415

REACTIONS (2)
  - CANDIDIASIS [None]
  - HERPES ZOSTER [None]
